FAERS Safety Report 4715468-0 (Version None)
Quarter: 2005Q3

REPORT INFORMATION
  Report Type: 
  Country: None (occurrence: None)
  Receive Date: 20050713
  Receipt Date: 20050708
  Transmission Date: 20060218
  Serious: Yes (Hospitalization)
  Sender: FDA-Public Use
  Company Number: 213970

PATIENT
  Age: 62 Year
  Sex: Male
  Weight: 69.4 kg

DRUGS (2)
  1. AVASTIN [Suspect]
     Indication: COLON CANCER
     Dosage: 370 MG , Q2W, INTRAVENOUS
     Route: 042
     Dates: start: 20040803, end: 20050118
  2. CAMPTOSAR [Concomitant]

REACTIONS (2)
  - BILE DUCT STENOSIS [None]
  - LIVER FUNCTION TEST ABNORMAL [None]
